FAERS Safety Report 22044127 (Version 3)
Quarter: 2023Q2

REPORT INFORMATION
  Report Type: Spontaneous
  Country: JP (occurrence: JP)
  Receive Date: 20230228
  Receipt Date: 20230615
  Transmission Date: 20230721
  Serious: Yes (Death, Life-Threatening, Other)
  Sender: FDA-Public Use
  Company Number: JP-ARGENX-2023-ARGX-JP000436

PATIENT
  Sex: Female
  Weight: 36 kg

DRUGS (2)
  1. VYVGART [Suspect]
     Active Substance: EFGARTIGIMOD ALFA-FCAB
     Indication: Myasthenia gravis
     Dosage: 20 MG
     Route: 041
     Dates: start: 20230130, end: 20230206
  2. PREDNISOLONE [Suspect]
     Active Substance: PREDNISOLONE
     Indication: Product used for unknown indication
     Dosage: 30 MG
     Route: 048

REACTIONS (1)
  - Lower gastrointestinal perforation [Fatal]

NARRATIVE: CASE EVENT DATE: 20230207
